FAERS Safety Report 4511830-X (Version None)
Quarter: 2004Q4

REPORT INFORMATION
  Report Type: 
  Country: None (occurrence: None)
  Receive Date: 20041129
  Receipt Date: 20041115
  Transmission Date: 20050328
  Serious: Yes (Other)
  Sender: FDA-Public Use
  Company Number: US-MERCK-0411USA02816

PATIENT
  Age: 64 Year
  Sex: Female

DRUGS (1)
  1. ZOCOR [Suspect]
     Route: 048

REACTIONS (3)
  - BREAST DISORDER [None]
  - MASTECTOMY [None]
  - RASH ERYTHEMATOUS [None]
